FAERS Safety Report 13834703 (Version 1)
Quarter: 2017Q3

REPORT INFORMATION
  Report Type: Other
  Country: GB (occurrence: GB)
  Receive Date: 20170804
  Receipt Date: 20170804
  Transmission Date: 20171127
  Serious: Yes (Hospitalization)
  Sender: FDA-Public Use
  Company Number: GB-REGULIS-2024157

PATIENT
  Age: 66 Year
  Sex: Female
  Weight: 92 kg

DRUGS (16)
  1. PROPOFOL. [Concomitant]
     Active Substance: PROPOFOL
  2. PROVAYBLUE [Suspect]
     Active Substance: METHYLENE BLUE
     Indication: BIOPSY LYMPH GLAND
     Route: 058
     Dates: start: 20170719, end: 20170719
  3. FENTANYL. [Concomitant]
     Active Substance: FENTANYL
  4. IBUPROFEN. [Concomitant]
     Active Substance: IBUPROFEN
  5. METARAMINOL [Concomitant]
     Active Substance: METARAMINOL
  6. GENERICS UK CO-AMOXICLAV [Concomitant]
  7. GLICLAZIDE [Concomitant]
     Active Substance: GLICLAZIDE
  8. ONDANSETRON [Concomitant]
     Active Substance: ONDANSETRON
  9. PARACETAMOL [Concomitant]
     Active Substance: ACETAMINOPHEN
  10. METFORMIN [Concomitant]
     Active Substance: METFORMIN HYDROCHLORIDE
  11. DEXAMETASONE [Concomitant]
     Active Substance: DEXAMETHASONE
  12. DICLOFENAC [Concomitant]
     Active Substance: DICLOFENAC
  13. SITAGLIPTIN [Concomitant]
     Active Substance: SITAGLIPTIN
  14. AMLODIPINE [Concomitant]
     Active Substance: AMLODIPINE BESYLATE
  15. PERINDOPRIL [Concomitant]
     Active Substance: PERINDOPRIL
  16. SIMVASTATIN. [Concomitant]
     Active Substance: SIMVASTATIN

REACTIONS (1)
  - Anaphylactic reaction [Recovered/Resolved]

NARRATIVE: CASE EVENT DATE: 20170719
